FAERS Safety Report 26190879 (Version 1)
Quarter: 2025Q4

REPORT INFORMATION
  Report Type: Spontaneous
  Country: US (occurrence: US)
  Receive Date: 20251223
  Receipt Date: 20251223
  Transmission Date: 20260118
  Serious: No
  Sender: ALEMBIC
  Company Number: US-ALEMBIC PHARMACUETICALS LIMITED-2025SCAL001789

PATIENT

DRUGS (1)
  1. DAPSONE [Suspect]
     Active Substance: DAPSONE
     Indication: Acne
     Dosage: 7.5 PERCENT, QD
     Route: 061

REACTIONS (3)
  - Instillation site foreign body sensation [Unknown]
  - Product physical consistency issue [Unknown]
  - Device occlusion [Unknown]
